FAERS Safety Report 19479056 (Version 1)
Quarter: 2021Q3

REPORT INFORMATION
  Report Type: Spontaneous
  Country: BR (occurrence: BR)
  Receive Date: 20210701
  Receipt Date: 20210701
  Transmission Date: 20211014
  Serious: Yes (Hospitalization)
  Sender: FDA-Public Use
  Company Number: BR-B.I. PHARMACEUTICALS,INC./RIDGEFIELD-2021-BI-111815

PATIENT
  Age: 63 Year
  Sex: Female

DRUGS (5)
  1. JARDIANCE [Suspect]
     Active Substance: EMPAGLIFLOZIN
     Indication: DIABETES MELLITUS
  2. AAS [Suspect]
     Active Substance: ASPIRIN
     Indication: PRODUCT USED FOR UNKNOWN INDICATION
  3. INSULIN DEGLUDEC [Concomitant]
     Active Substance: INSULIN DEGLUDEC
     Indication: DIABETES MELLITUS
  4. GLYXAMBI [Suspect]
     Active Substance: EMPAGLIFLOZIN\LINAGLIPTIN
     Indication: DIABETES MELLITUS
     Route: 048
  5. LINAGLIPTINA [Suspect]
     Active Substance: LINAGLIPTIN
     Indication: DIABETES MELLITUS

REACTIONS (7)
  - Ulcer [Unknown]
  - Sarcopenia [Unknown]
  - Urinary tract infection [Recovered/Resolved]
  - Escherichia infection [Unknown]
  - Infection [Unknown]
  - Haematuria [Unknown]
  - Eating disorder [Unknown]
